FAERS Safety Report 6152598-3 (Version None)
Quarter: 2009Q2

REPORT INFORMATION
  Report Type: 
  Country: None (occurrence: None)
  Receive Date: 20090413
  Receipt Date: 20090331
  Transmission Date: 20091009
  Serious: Yes (Other)
  Sender: FDA-Public Use
  Company Number: FI-ELI_LILLY_AND_COMPANY-FI200903007755

PATIENT
  Age: 67 Year
  Sex: Female

DRUGS (3)
  1. CYMBALTA [Suspect]
     Indication: DEPRESSION
     Dosage: 60 MG, DAILY (1/D)
     Route: 048
     Dates: start: 20090227, end: 20090302
  2. LYRICA [Concomitant]
     Dosage: 75 MG, UNKNOWN
     Route: 065
  3. LAMICTAL [Concomitant]
     Dosage: 50 MG, UNK

REACTIONS (4)
  - EYE SWELLING [None]
  - HEADACHE [None]
  - SWELLING [None]
  - URTICARIA [None]
